FAERS Safety Report 22606866 (Version 6)
Quarter: 2023Q4

REPORT INFORMATION
  Report Type: Spontaneous
  Country: US (occurrence: US)
  Receive Date: 20230615
  Receipt Date: 20231120
  Transmission Date: 20240110
  Serious: No
  Sender: FDA-Public Use
  Company Number: US-PFIZER INC-PV202300086634

PATIENT
  Age: 73 Year
  Sex: Female

DRUGS (3)
  1. XELJANZ [Suspect]
     Active Substance: TOFACITINIB CITRATE
     Indication: Rheumatoid arthritis
     Dosage: 10 MG, 1X/DAY
     Route: 048
     Dates: start: 20230510
  2. XELJANZ [Suspect]
     Active Substance: TOFACITINIB CITRATE
     Dosage: 10 MG, 1X/DAY
     Route: 048
     Dates: start: 20230510
  3. BYSTOLIC [Concomitant]
     Active Substance: NEBIVOLOL HYDROCHLORIDE
     Indication: Hypertension
     Dosage: UNK

REACTIONS (8)
  - Headache [Unknown]
  - Disease recurrence [Unknown]
  - Sensitivity to weather change [Unknown]
  - Viral rash [Recovered/Resolved]
  - Therapeutic product effect incomplete [Recovering/Resolving]
  - Off label use [Unknown]
  - Protein urine present [Unknown]
  - Dysstasia [Unknown]

NARRATIVE: CASE EVENT DATE: 20230101
